FAERS Safety Report 5015979-7 (Version None)
Quarter: 2006Q2

REPORT INFORMATION
  Report Type: 
  Country: None (occurrence: None)
  Receive Date: 20060531
  Receipt Date: 20060531
  Transmission Date: 20061013
  Serious: Yes (Other)
  Sender: FDA-Public Use
  Company Number: None

PATIENT
  Age: 50 Year
  Sex: Male
  Weight: 74.8435 kg

DRUGS (1)
  1. ZOCOR [Suspect]
     Indication: BLOOD CHOLESTEROL INCREASED
     Dosage: 40MG  1 DAYLY  PO
     Route: 048
     Dates: start: 20050315, end: 20050521

REACTIONS (3)
  - ANGER [None]
  - LETHARGY [None]
  - MUSCULAR WEAKNESS [None]
